FAERS Safety Report 6620683-5 (Version None)
Quarter: 2010Q1

REPORT INFORMATION
  Report Type: 
  Country: None (occurrence: None)
  Receive Date: 20100309
  Receipt Date: 20100224
  Transmission Date: 20100710
  Serious: Yes (Hospitalization)
  Sender: FDA-Public Use
  Company Number: JP-GENENTECH-234181

PATIENT
  Sex: Male
  Weight: 42.993 kg

DRUGS (10)
  1. RANIBIZUMAB [Suspect]
     Indication: MACULAR DEGENERATION
     Dosage: 500 A?G, 1/MONTH
     Route: 031
     Dates: start: 20060825
  2. ADALAT CC [Concomitant]
     Indication: DRUG USE FOR UNKNOWN INDICATION
  3. GASTER [Concomitant]
     Indication: DRUG USE FOR UNKNOWN INDICATION
  4. METHYCOBAL [Concomitant]
     Indication: DRUG USE FOR UNKNOWN INDICATION
  5. KETOPROFEN [Concomitant]
     Indication: DRUG USE FOR UNKNOWN INDICATION
  6. SODIUM PICOSULFATE [Concomitant]
     Indication: DRUG USE FOR UNKNOWN INDICATION
  7. NOVOLIN [Concomitant]
     Indication: DRUG USE FOR UNKNOWN INDICATION
  8. TENORMIN [Concomitant]
     Indication: DRUG USE FOR UNKNOWN INDICATION
  9. SIGMART [Concomitant]
     Indication: DRUG USE FOR UNKNOWN INDICATION
  10. PONTAL [Concomitant]
     Indication: DRUG USE FOR UNKNOWN INDICATION

REACTIONS (1)
  - ANGINA PECTORIS [None]
